FAERS Safety Report 4745827-1 (Version None)
Quarter: 2005Q3

REPORT INFORMATION
  Report Type: 
  Country: None (occurrence: None)
  Receive Date: 20050815
  Receipt Date: 20050815
  Transmission Date: 20060218
  Serious: Yes (Hospitalization)
  Sender: FDA-Public Use
  Company Number: None

PATIENT
  Age: 43 Year
  Sex: Female
  Weight: 68.0396 kg

DRUGS (1)
  1. AUGMENTIN '875' [Suspect]
     Indication: PYREXIA
     Dosage: 1TAB  BID ORAL
     Route: 048
     Dates: start: 20050329, end: 20050331

REACTIONS (1)
  - TOXIC EPIDERMAL NECROLYSIS [None]
